FAERS Safety Report 20108012 (Version 1)
Quarter: 2021Q4

REPORT INFORMATION
  Report Type: Spontaneous
  Country: US (occurrence: None)
  Receive Date: 20211124
  Receipt Date: 20211124
  Transmission Date: 20220303
  Serious: No
  Sender: FDA-Public Use
  Company Number: 2021A809547

PATIENT
  Age: 20 Year
  Sex: Female
  Weight: 72.6 kg

DRUGS (1)
  1. BUDESONIDE\FORMOTEROL\GLYCOPYRRONIUM [Suspect]
     Active Substance: BUDESONIDE\FORMOTEROL\GLYCOPYRRONIUM
     Indication: Asthma
     Dosage: 160/9/4.8 MCG 1 OR 2 PUFFS
     Route: 055

REACTIONS (4)
  - Asthma [Not Recovered/Not Resolved]
  - Drug delivery system malfunction [Unknown]
  - Drug dose omission by device [Not Recovered/Not Resolved]
  - Product use issue [Not Recovered/Not Resolved]

NARRATIVE: CASE EVENT DATE: 20211113
